FAERS Safety Report 18079938 (Version 2)
Quarter: 2020Q4

REPORT INFORMATION
  Report Type: Spontaneous
  Country: GB (occurrence: GB)
  Receive Date: 20200728
  Receipt Date: 20201104
  Transmission Date: 20210113
  Serious: Yes (Hospitalization, Other)
  Sender: FDA-Public Use
  Company Number: GB-TEVA-2020-GB-1804251

PATIENT
  Age: 68 Year
  Sex: Female

DRUGS (11)
  1. LASTET INJ. 100MG/5ML (ETOPOSIDE) INJECTION [Suspect]
     Active Substance: ETOPOSIDE
     Indication: HODGKIN^S DISEASE
     Route: 065
  2. DACARBAZINE (DACARBAZINE CITRATE) INJECTION; [Suspect]
     Active Substance: DACARBAZINE CITRATE
     Indication: HODGKIN^S DISEASE
     Dosage: DACARBAZINE (DACARBAZINE CITRATE) INJECTION;
     Route: 041
  3. DOXORUBICIN HYDROCHLORIDE FOR INJECTION 50MG [Suspect]
     Active Substance: DOXORUBICIN HYDROCHLORIDE
     Indication: HODGKIN^S DISEASE
     Route: 041
  4. VINCRISTINE [Suspect]
     Active Substance: VINCRISTINE
     Indication: HODGKIN^S DISEASE
     Route: 065
  5. PROCARBAZINE (PROCARBAZINE HYDROCHLORIDE) [Suspect]
     Active Substance: PROCARBAZINE HYDROCHLORIDE
     Indication: HODGKIN^S DISEASE
     Route: 065
  6. EXAL FOR INJ. 10MG (VINBLASTINES ULFATE) INJECTION; [Suspect]
     Active Substance: VINBLASTINE SULFATE
     Indication: HODGKIN^S DISEASE
     Route: 040
  7. COTRIMOXAZOLE [Concomitant]
     Active Substance: SULFAMETHOXAZOLE\TRIMETHOPRIM
     Indication: ANTIVIRAL PROPHYLAXIS
  8. ACYCLOVIR. [Concomitant]
     Active Substance: ACYCLOVIR
     Indication: ANTIVIRAL PROPHYLAXIS
     Route: 042
  9. PREDNISOLONE (PREDNISOLONE) [Suspect]
     Active Substance: PREDNISOLONE
     Indication: HODGKIN^S DISEASE
     Route: 065
  10. BLEO FOR INJ. 5MG (BLEOMYCIN HYDROCHLORIDE) INJECTION [Suspect]
     Active Substance: BLEOMYCIN HYDROCHLORIDE
     Indication: HODGKIN^S DISEASE
     Dosage: BLEO FOR INJ. 5MG (BLEOMYCIN HYDROCHLORIDE) INJECTION
     Route: 041
  11. CHLORAMBUCIL (CHLORAMBUCIL) [Suspect]
     Active Substance: CHLORAMBUCIL
     Indication: HODGKIN^S DISEASE
     Route: 065

REACTIONS (5)
  - Cytopenia [Recovered/Resolved]
  - Febrile neutropenia [Recovered/Resolved]
  - Posterior reversible encephalopathy syndrome [Recovered/Resolved]
  - Lymphopenia [Recovered/Resolved]
  - Encephalitis viral [Recovered/Resolved]
